FAERS Safety Report 15058312 (Version 2)
Quarter: 2021Q4

REPORT INFORMATION
  Report Type: Other
  Country: GD (occurrence: GD)
  Receive Date: 20180625
  Receipt Date: 20211103
  Transmission Date: 20220303
  Serious: Yes (Hospitalization, Other)
  Sender: FDA-Public Use
  Company Number: GD-DENTSPLY-2018SCDP000236

PATIENT
  Age: 31 Year
  Sex: Female

DRUGS (3)
  1. LIDOCAINE [Suspect]
     Active Substance: LIDOCAINE
     Indication: Epidural anaesthesia
     Dosage: 16 MILLILITER TOTAL (BOLUS) 2 % LIDOCAINE
     Route: 008
  2. EPINEPHRINE [Concomitant]
     Active Substance: EPINEPHRINE
     Indication: Product used for unknown indication
     Dosage: UNK
     Route: 008
  3. METHERGINE [Concomitant]
     Active Substance: METHYLERGONOVINE MALEATE
     Indication: Product used for unknown indication
     Dosage: 0.2 MILLIGRAM
     Route: 030

REACTIONS (5)
  - Horner^s syndrome [Recovered/Resolved]
  - Amnesia [Recovered/Resolved]
  - Unresponsive to stimuli [Recovered/Resolved]
  - Maternal exposure during pregnancy [Recovered/Resolved]
  - Loss of consciousness [Recovered/Resolved]
